FAERS Safety Report 13458424 (Version 2)
Quarter: 2017Q2

REPORT INFORMATION
  Report Type: Spontaneous
  Country: US (occurrence: US)
  Receive Date: 20170419
  Receipt Date: 20170509
  Transmission Date: 20170830
  Serious: No
  Sender: FDA-Public Use
  Company Number: US-BAYER-2017-074460

PATIENT
  Age: 64 Year
  Sex: Female
  Weight: 104 kg

DRUGS (3)
  1. POTASSIUM [POTASSIUM] [Concomitant]
     Active Substance: POTASSIUM
  2. ALEVE PM [Suspect]
     Active Substance: DIPHENHYDRAMINE HYDROCHLORIDE\NAPROXEN SODIUM
     Indication: PAIN
     Dosage: 1 DF, UNK
     Route: 048
  3. CALCIUM [CALCIUM] [Concomitant]
     Active Substance: CALCIUM

REACTIONS (3)
  - Therapeutic response unexpected [None]
  - Drug effect delayed [None]
  - Expired product administered [None]

NARRATIVE: CASE EVENT DATE: 20170417
